FAERS Safety Report 5710814-3 (Version None)
Quarter: 2008Q2

REPORT INFORMATION
  Report Type: 
  Country: None (occurrence: None)
  Receive Date: 20080417
  Receipt Date: 20080417
  Transmission Date: 20081010
  Serious: Yes (Hospitalization)
  Sender: FDA-Public Use
  Company Number: None

PATIENT
  Age: 10 Year
  Sex: Female

DRUGS (1)
  1. AZITHROMYCIN [Suspect]
     Dosage: ORAL
     Route: 048
     Dates: start: 20080415, end: 20080415

REACTIONS (2)
  - DIZZINESS [None]
  - DYSPNOEA [None]
